FAERS Safety Report 14742254 (Version 3)
Quarter: 2018Q2

REPORT INFORMATION
  Report Type: Spontaneous
  Country: JP (occurrence: JP)
  Receive Date: 20180410
  Receipt Date: 20180516
  Transmission Date: 20180711
  Serious: Yes (Hospitalization)
  Sender: FDA-Public Use
  Company Number: JP-OTSUKA-2018_008451

PATIENT
  Age: 50 Year
  Sex: Male

DRUGS (1)
  1. ABILIFY MAINTENA [Suspect]
     Active Substance: ARIPIPRAZOLE
     Indication: SCHIZOPHRENIA
     Dosage: 400 MG, SINGLE
     Route: 030

REACTIONS (1)
  - Alcoholic pancreatitis [Not Recovered/Not Resolved]

NARRATIVE: CASE EVENT DATE: 20180329
